FAERS Safety Report 6041938-1 (Version None)
Quarter: 2009Q1

REPORT INFORMATION
  Report Type: 
  Country: None (occurrence: None)
  Receive Date: 20090116
  Receipt Date: 20090105
  Transmission Date: 20090719
  Serious: Yes (Death)
  Sender: FDA-Public Use
  Company Number: CL-ROCHE-606598

PATIENT
  Age: 80 Year
  Sex: Male

DRUGS (1)
  1. XELODA [Suspect]
     Indication: RECTAL CANCER
     Dosage: FOR 2 WEEKS FOLLOWED BY 7 DAYS REST PERIOD.
     Route: 048
     Dates: start: 20081126, end: 20081230

REACTIONS (1)
  - DEATH [None]
